FAERS Safety Report 10124262 (Version 1)
Quarter: 2014Q2

REPORT INFORMATION
  Report Type: Report from Study
  Country: US (occurrence: US)
  Receive Date: 20140427
  Receipt Date: 20140427
  Transmission Date: 20141212
  Serious: Yes (Death)
  Sender: FDA-Public Use
  Company Number: PHEH2014US008149

PATIENT
  Sex: Female

DRUGS (2)
  1. AFINITOR [Suspect]
     Indication: OVARIAN CANCER
     Dosage: 5 MG, QD
     Route: 048
  2. AFINITOR [Suspect]
     Indication: OFF LABEL USE

REACTIONS (1)
  - Death [Fatal]
